FAERS Safety Report 7828560-9 (Version None)
Quarter: 2011Q4

REPORT INFORMATION
  Report Type: 
  Country: None (occurrence: None)
  Receive Date: 20111020
  Receipt Date: 20111020
  Transmission Date: 20120403
  Serious: Yes (Other)
  Sender: FDA-Public Use
  Company Number: None

PATIENT
  Age: 47 Year
  Sex: Female
  Weight: 61.234 kg

DRUGS (1)
  1. OXYMETAZOLINE HCL [Suspect]
     Indication: NASOPHARYNGITIS
     Dosage: 1 SQUIRT EACH NOSTREL
     Dates: start: 20111018, end: 20111018

REACTIONS (3)
  - NASAL DISCOMFORT [None]
  - ANOSMIA [None]
  - AGEUSIA [None]
